FAERS Safety Report 6348165-9 (Version None)
Quarter: 2009Q3

REPORT INFORMATION
  Report Type: 
  Country: None (occurrence: None)
  Receive Date: 20090908
  Receipt Date: 20090831
  Transmission Date: 20100115
  Serious: Yes (Other)
  Sender: FDA-Public Use
  Company Number: GXKR2009DE09710

PATIENT
  Sex: Male

DRUGS (1)
  1. TRAMADOL (NGX) (TRAMADOL) ORAL SOLUTION [Suspect]
     Indication: PAIN
     Dosage: 37.5 MG, BID, ORAL
     Route: 048

REACTIONS (6)
  - BALANCE DISORDER [None]
  - DEPRESSION [None]
  - HYPERHIDROSIS [None]
  - MUSCLE SPASMS [None]
  - SLEEP DISORDER [None]
  - WITHDRAWAL SYNDROME [None]
